FAERS Safety Report 23822579 (Version 3)
Quarter: 2024Q2

REPORT INFORMATION
  Report Type: Spontaneous
  Country: CH (occurrence: CH)
  Receive Date: 20240506
  Receipt Date: 20240521
  Transmission Date: 20240716
  Serious: Yes (Hospitalization, Other)
  Sender: FDA-Public Use
  Company Number: CH-MLMSERVICE-20240424-PI036947-00270-1

PATIENT
  Age: 76 Year
  Sex: Female
  Weight: 56 kg

DRUGS (4)
  1. METHYLPREDNISOLONE SODIUM SUCCINATE [Suspect]
     Active Substance: METHYLPREDNISOLONE SODIUM SUCCINATE
     Indication: Steroid therapy
     Dosage: 500 MG, 1X/DAY
     Route: 042
  2. METHYLPREDNISOLONE SODIUM SUCCINATE [Suspect]
     Active Substance: METHYLPREDNISOLONE SODIUM SUCCINATE
     Indication: Giant cell arteritis
  3. VALACYCLOVIR HYDROCHLORIDE [Concomitant]
     Active Substance: VALACYCLOVIR HYDROCHLORIDE
     Dosage: UNK
  4. CEFTRIAXONE [Concomitant]
     Active Substance: CEFTRIAXONE\CEFTRIAXONE SODIUM
     Dosage: UNK

REACTIONS (8)
  - Infected vasculitis [Not Recovered/Not Resolved]
  - Mucormycosis [Not Recovered/Not Resolved]
  - Rhinocerebral mucormycosis [Not Recovered/Not Resolved]
  - Epilepsy [Not Recovered/Not Resolved]
  - Lacunar stroke [Not Recovered/Not Resolved]
  - Carotid artery stenosis [Not Recovered/Not Resolved]
  - Infection [Not Recovered/Not Resolved]
  - Cerebrovascular accident [Not Recovered/Not Resolved]
